FAERS Safety Report 9958392 (Version 2)
Quarter: 2014Q1

REPORT INFORMATION
  Report Type: Spontaneous
  Country: US (occurrence: US)
  Receive Date: 20140305
  Receipt Date: 20140320
  Transmission Date: 20141002
  Serious: No
  Sender: FDA-Public Use
  Company Number: US-009507513-1402USA011337

PATIENT
  Age: 28 Year
  Sex: Male
  Weight: 78.5 kg

DRUGS (1)
  1. VYTORIN [Suspect]
     Dosage: UNK
     Route: 048
     Dates: start: 200706

REACTIONS (1)
  - Onychomadesis [Recovered/Resolved]
